FAERS Safety Report 13391779 (Version 1)
Quarter: 2017Q1

REPORT INFORMATION
  Report Type: Spontaneous
  Country: CN (occurrence: CN)
  Receive Date: 20170331
  Receipt Date: 20170331
  Transmission Date: 20170429
  Serious: Yes (Death)
  Sender: FDA-Public Use
  Company Number: CN-BAYER-2017-059743

PATIENT
  Age: 68 Year
  Sex: Male

DRUGS (2)
  1. BAYASPIRIN 100 MG [Suspect]
     Active Substance: ASPIRIN
     Indication: CARDIOVASCULAR DISORDER
     Dosage: 100 MG, QD
     Route: 048
     Dates: start: 20161122, end: 20170114
  2. TICAGRELOR [Suspect]
     Active Substance: TICAGRELOR
     Indication: CARDIOVASCULAR DISORDER
     Dosage: 90 MG, BID
     Route: 048
     Dates: start: 20161122, end: 20170114

REACTIONS (1)
  - Cerebral haemorrhage [Fatal]

NARRATIVE: CASE EVENT DATE: 20170114
